FAERS Safety Report 13176974 (Version 2)
Quarter: 2017Q3

REPORT INFORMATION
  Report Type: Report from Study
  Country: US (occurrence: US)
  Receive Date: 20170201
  Receipt Date: 20170731
  Transmission Date: 20171127
  Serious: No
  Sender: FDA-Public Use
  Company Number: US-EXELIXIS-CABO-16006778

PATIENT
  Sex: Male

DRUGS (7)
  1. FLUCONAZOLE. [Concomitant]
     Active Substance: FLUCONAZOLE
  2. NORCO [Concomitant]
     Active Substance: ACETAMINOPHEN\HYDROCODONE BITARTRATE
  3. HYDROCODONE [Concomitant]
     Active Substance: HYDROCODONE
  4. IBUPROFEN. [Concomitant]
     Active Substance: IBUPROFEN
  5. ATIVAN [Concomitant]
     Active Substance: LORAZEPAM
  6. MAGNESIUM [Concomitant]
     Active Substance: MAGNESIUM
  7. CABOMETYX [Suspect]
     Active Substance: CABOZANTINIB S-MALATE
     Indication: RENAL CANCER
     Dosage: 60 MG, QD
     Route: 048
     Dates: start: 20160702

REACTIONS (1)
  - Skin discolouration [Unknown]
